FAERS Safety Report 23321366 (Version 1)
Quarter: 2023Q4

REPORT INFORMATION
  Report Type: Spontaneous
  Country: US (occurrence: US)
  Receive Date: 20231220
  Receipt Date: 20231220
  Transmission Date: 20240109
  Serious: No
  Sender: FDA-Public Use
  Company Number: US-BEH-2023166537

PATIENT
  Sex: Female

DRUGS (29)
  1. PRIVIGEN [Suspect]
     Active Substance: HUMAN IMMUNOGLOBULIN G
     Indication: Asthma
     Dosage: 30 GRAM, QMT
     Route: 042
  2. ALLOPURINOL [Concomitant]
     Active Substance: ALLOPURINOL
  3. METHOTREXATE [Concomitant]
     Active Substance: METHOTREXATE
  4. SULFASALAZINE [Concomitant]
     Active Substance: SULFASALAZINE
  5. NAPROXEN [Concomitant]
     Active Substance: NAPROXEN
  6. ALBUTEROL SULFATE [Concomitant]
     Active Substance: ALBUTEROL SULFATE
  7. AZITHROMYCIN [Concomitant]
     Active Substance: AZITHROMYCIN
  8. CLONAZEPAM [Concomitant]
     Active Substance: CLONAZEPAM
  9. ELIQUIS [Concomitant]
     Active Substance: APIXABAN
  10. FISH OIL [Concomitant]
     Active Substance: FISH OIL
  11. HYDROCHLOROTHIAZIDE [Concomitant]
     Active Substance: HYDROCHLOROTHIAZIDE
  12. HYDROCODONE [Concomitant]
     Active Substance: HYDROCODONE
  13. HYDROCORTISONE [Concomitant]
     Active Substance: HYDROCORTISONE
  14. LEVOTHYROXINE [Concomitant]
     Active Substance: LEVOTHYROXINE
  15. MAGNESIUM [Concomitant]
     Active Substance: MAGNESIUM
  16. MECLIZINE HYDROCHLORIDE [Concomitant]
     Active Substance: MECLIZINE HYDROCHLORIDE
  17. METFORMIN HYDROCHLORIDE [Concomitant]
     Active Substance: METFORMIN HYDROCHLORIDE
  18. METOPROLOL [Concomitant]
     Active Substance: METOPROLOL
  19. OMEPRAZOLE [Concomitant]
     Active Substance: OMEPRAZOLE
  20. POTASSIUM CHLORIDE [Concomitant]
     Active Substance: POTASSIUM CHLORIDE
  21. PROBIOTICS NOS [Concomitant]
     Active Substance: PROBIOTICS NOS
  22. HERBALS\PLANTAGO OVATA SEED COAT [Concomitant]
     Active Substance: HERBALS\PLANTAGO OVATA SEED COAT
  23. PULMICORT FLEXHALER [Concomitant]
     Active Substance: BUDESONIDE
  24. SINGULAIR [Concomitant]
     Active Substance: MONTELUKAST SODIUM
  25. SYMBICORT [Concomitant]
     Active Substance: BUDESONIDE\FORMOTEROL FUMARATE DIHYDRATE
  26. VALACYCLOVIR [Concomitant]
     Active Substance: VALACYCLOVIR HYDROCHLORIDE
  27. VALSARTAN [Concomitant]
     Active Substance: VALSARTAN
  28. VERAPAMIL HCL [Concomitant]
     Active Substance: VERAPAMIL HYDROCHLORIDE
  29. ZYRTEC [Concomitant]
     Active Substance: CETIRIZINE HYDROCHLORIDE

REACTIONS (4)
  - Malaise [Unknown]
  - Gastroenteritis viral [Unknown]
  - No adverse event [Unknown]
  - Off label use [Unknown]
